FAERS Safety Report 9161343 (Version 1)
Quarter: 2013Q1

REPORT INFORMATION
  Report Type: Spontaneous
  Country: US (occurrence: US)
  Receive Date: 20130313
  Receipt Date: 20130313
  Transmission Date: 20140127
  Serious: No
  Sender: FDA-Public Use
  Company Number: US-009507513-1303USA003208

PATIENT
  Sex: Female
  Weight: 91.6 kg

DRUGS (3)
  1. VICTRELIS [Suspect]
     Indication: HEPATITIS C
     Dosage: 800 MG, TID
     Route: 048
     Dates: start: 201205
  2. RIBASPHERE [Suspect]
     Indication: HEPATITIS C
     Dosage: 3 TABLETS 600 MG, EVERY MORNING AND EVERY EVENING
     Route: 048
  3. PEGASYS [Suspect]
     Indication: HEPATITIS C
     Dosage: 180 MICROGRAM, 0.5 ML, QW
     Route: 058

REACTIONS (1)
  - Hypersensitivity [Unknown]
